FAERS Safety Report 22801463 (Version 7)
Quarter: 2025Q1

REPORT INFORMATION
  Report Type: Spontaneous
  Country: US (occurrence: US)
  Receive Date: 20230809
  Receipt Date: 20250319
  Transmission Date: 20250408
  Serious: Yes (Other)
  Sender: ROCHE
  Company Number: US-ROCHE-3397877

PATIENT
  Age: 82 Year
  Sex: Female

DRUGS (13)
  1. VABYSMO [Suspect]
     Active Substance: FARICIMAB-SVOA
     Indication: Neovascular age-related macular degeneration
     Dosage: 6MG/0.5ML
     Route: 050
     Dates: start: 20230505
  2. VABYSMO [Suspect]
     Active Substance: FARICIMAB-SVOA
     Dosage: 6MG/0.5ML
     Route: 050
     Dates: start: 20230606
  3. VABYSMO [Suspect]
     Active Substance: FARICIMAB-SVOA
     Route: 050
  4. AVASTIN [Suspect]
     Active Substance: BEVACIZUMAB
     Indication: Product used for unknown indication
     Route: 065
     Dates: start: 2013
  5. LUCENTIS [Suspect]
     Active Substance: RANIBIZUMAB
     Indication: Product used for unknown indication
     Route: 065
     Dates: start: 2015
  6. EYLEA [Concomitant]
     Active Substance: AFLIBERCEPT
     Indication: Neovascular age-related macular degeneration
     Dates: start: 2013
  7. ASPIRIN [Concomitant]
     Active Substance: ASPIRIN
     Route: 048
  8. METFORMIN [Concomitant]
     Active Substance: METFORMIN HYDROCHLORIDE
  9. OMEPRAZOLE [Concomitant]
     Active Substance: OMEPRAZOLE
     Route: 048
  10. METFORMIN [Concomitant]
     Active Substance: METFORMIN HYDROCHLORIDE
     Route: 048
  11. LEVOXYL [Concomitant]
     Active Substance: LEVOTHYROXINE SODIUM
     Route: 048
  12. LIDOCAINE [Concomitant]
     Active Substance: LIDOCAINE
  13. PROPARACAINE [Concomitant]
     Active Substance: PROPARACAINE

REACTIONS (22)
  - Retinal vein occlusion [Unknown]
  - Off label use [Unknown]
  - Visual impairment [Unknown]
  - Retinal haemorrhage [Unknown]
  - Subretinal hyperreflective exudation [Unknown]
  - Angiopathy [Unknown]
  - Retinal infarction [Unknown]
  - Ischaemia [Unknown]
  - Retinal occlusive vasculitis [Unknown]
  - Neovascular age-related macular degeneration [Unknown]
  - Disease progression [Unknown]
  - Drug ineffective [Unknown]
  - Eye pain [Unknown]
  - Detachment of retinal pigment epithelium [Unknown]
  - Blindness unilateral [Not Recovered/Not Resolved]
  - Blepharal papilloma [Unknown]
  - Blindness [Unknown]
  - Lacrimation increased [Unknown]
  - Oedema [Unknown]
  - Retinal artery occlusion [Unknown]
  - Vision blurred [Unknown]
  - Vitreous floaters [Unknown]

NARRATIVE: CASE EVENT DATE: 20230513
